FAERS Safety Report 21178605 (Version 3)
Quarter: 2022Q3

REPORT INFORMATION
  Report Type: Report from Study
  Country: US (occurrence: US)
  Receive Date: 20220805
  Receipt Date: 20220929
  Transmission Date: 20221026
  Serious: Yes (Hospitalization, Other)
  Sender: FDA-Public Use
  Company Number: US-BAYER-2022A105910

PATIENT
  Age: 62 Year
  Sex: Male

DRUGS (5)
  1. STIVARGA [Suspect]
     Active Substance: REGORAFENIB
     Indication: Malignant connective tissue neoplasm
     Dosage: 80 MG, QD ON DAYS 1 THROUGH 21, THEN OFF ON DAYS 22 THROUGH 28
     Dates: start: 20220720
  2. STIVARGA [Suspect]
     Active Substance: REGORAFENIB
     Indication: Soft tissue sarcoma
     Dosage: 80 MG, QD
     Route: 048
  3. STIVARGA [Suspect]
     Active Substance: REGORAFENIB
     Indication: Malignant connective tissue neoplasm
     Dosage: 120 MG, QD ON DAYS 1-21 THEN OFF ON DAYS 22 THROUGH 28 OF EACH 28 DAY CYCLE
     Route: 048
  4. IMATINIB MESYLATE [Concomitant]
     Active Substance: IMATINIB MESYLATE
     Indication: Gastrointestinal stromal tumour
     Dosage: 400 MG, BID
     Route: 048
     Dates: start: 2005
  5. PAIN RELIEF NOS [Concomitant]
     Active Substance: CAMPHOR (SYNTHETIC)\LEVOMENTHOL\MENTHYL SALICYLATE OR CAMPHOR (SYNTHETIC)\MENTHOL\MENTHYL SALICYLATE
     Dosage: UNK

REACTIONS (7)
  - Blood pressure fluctuation [Recovering/Resolving]
  - Abdominal pain upper [Recovering/Resolving]
  - Diverticulitis [Recovering/Resolving]
  - Blood creatinine increased [Recovering/Resolving]
  - Off label use [None]
  - Dysuria [None]
  - Aphonia [None]

NARRATIVE: CASE EVENT DATE: 20220701
